FAERS Safety Report 10407746 (Version 1)
Quarter: 2014Q3

REPORT INFORMATION
  Report Type: Spontaneous
  Country: US (occurrence: US)
  Receive Date: 20140825
  Receipt Date: 20140825
  Transmission Date: 20150326
  Serious: Yes (Hospitalization, Other)
  Sender: FDA-Public Use
  Company Number: US-PFIZER INC-2014234183

PATIENT
  Age: 82 Year
  Sex: Female
  Weight: 90.7 kg

DRUGS (4)
  1. LYRICA [Suspect]
     Active Substance: PREGABALIN
     Indication: MUSCULOSKELETAL DISCOMFORT
  2. PREVACID [Concomitant]
     Active Substance: LANSOPRAZOLE
     Dosage: UNK
  3. LYRICA [Suspect]
     Active Substance: PREGABALIN
     Indication: LIMB DISCOMFORT
     Dosage: UNK, 2X/DAY
     Route: 048
     Dates: start: 20130312, end: 201406
  4. LYRICA [Suspect]
     Active Substance: PREGABALIN
     Indication: NEUROPATHY PERIPHERAL

REACTIONS (17)
  - Self-injurious ideation [Unknown]
  - Furuncle [Unknown]
  - Muscle spasms [Unknown]
  - Eating disorder [Unknown]
  - Tongue injury [Unknown]
  - Swollen tongue [Unknown]
  - Gait disturbance [Unknown]
  - Suicidal ideation [Unknown]
  - Anxiety [Unknown]
  - Local swelling [Unknown]
  - Malaise [Unknown]
  - Drug withdrawal syndrome [Unknown]
  - Dysuria [Unknown]
  - Dyspnoea [Unknown]
  - Joint swelling [Unknown]
  - Fatigue [Unknown]
  - Weight decreased [Unknown]

NARRATIVE: CASE EVENT DATE: 2014
